FAERS Safety Report 6203475-0 (Version None)
Quarter: 2009Q2

REPORT INFORMATION
  Report Type: 
  Country: None (occurrence: None)
  Receive Date: 20090521
  Receipt Date: 20090507
  Transmission Date: 20091009
  Serious: Yes (Hospitalization)
  Sender: FDA-Public Use
  Company Number: 8046075

PATIENT
  Age: 45 Year
  Sex: Female
  Weight: 108 kg

DRUGS (11)
  1. CIMZIA [Suspect]
     Indication: CROHN'S DISEASE
     Dosage: 400 MG /M SC
     Route: 058
     Dates: start: 20080901, end: 20090401
  2. CIMZIA [Suspect]
     Indication: CROHN'S DISEASE
     Dosage: 400 MG 1/2W SC
     Route: 058
     Dates: start: 20090401
  3. VICODIN [Concomitant]
  4. BUSPAR [Concomitant]
  5. BENTYL [Concomitant]
  6. PRILOSEC [Concomitant]
  7. PHENERGAN [Concomitant]
  8. MERCAPTOPURINE [Concomitant]
  9. POTASSIUM CHLORIDE [Concomitant]
  10. TYLENOL (CAPLET) [Concomitant]
  11. BENADRYL [Concomitant]

REACTIONS (4)
  - ABDOMINAL INFECTION [None]
  - ABDOMINAL PAIN [None]
  - ARTHRALGIA [None]
  - VISION BLURRED [None]
